FAERS Safety Report 5499317-1 (Version None)
Quarter: 2007Q4

REPORT INFORMATION
  Report Type: 
  Country: None (occurrence: None)
  Receive Date: 20071024
  Receipt Date: 20071011
  Transmission Date: 20080405
  Serious: Yes (Hospitalization)
  Sender: FDA-Public Use
  Company Number: 2007AD000091

PATIENT
  Age: 53 Year
  Sex: Male

DRUGS (2)
  1. CEPHALEXIN [Suspect]
     Indication: PURULENT DISCHARGE
     Dosage: PO
     Route: 048
  2. CORTICOSTEROIDS FOR SYSTEMIC USE [Concomitant]

REACTIONS (11)
  - CANDIDIASIS [None]
  - CARDIAC TAMPONADE [None]
  - CARDIOMEGALY [None]
  - CULTURE URINE POSITIVE [None]
  - DRUG INEFFECTIVE [None]
  - PERICARDIAL EFFUSION [None]
  - PROTEUS INFECTION [None]
  - PURULENT PERICARDITIS [None]
  - RESPIRATORY DISTRESS [None]
  - SEPTIC SHOCK [None]
  - STAPHYLOCOCCAL INFECTION [None]
